FAERS Safety Report 22660708 (Version 1)
Quarter: 2023Q2

REPORT INFORMATION
  Report Type: Spontaneous
  Country: US (occurrence: US)
  Receive Date: 20230630
  Receipt Date: 20230630
  Transmission Date: 20230721
  Serious: No
  Sender: FDA-Public Use
  Company Number: US-JAZZ PHARMACEUTICALS-2022-US-038012

PATIENT
  Sex: Male
  Weight: 99.773 kg

DRUGS (6)
  1. EPIDIOLEX [Suspect]
     Active Substance: CANNABIDIOL
     Indication: Seizure
     Dosage: 2.5 MILLILITER, BID
     Route: 048
     Dates: start: 20221116
  2. TEGRETOL [Concomitant]
     Active Substance: CARBAMAZEPINE
     Dosage: UNK
  3. LYRICA [Concomitant]
     Active Substance: PREGABALIN
     Dosage: UNK
  4. ONFI [Concomitant]
     Active Substance: CLOBAZAM
     Dosage: UNK
  5. MYSOLINE [Concomitant]
     Active Substance: PRIMIDONE
     Dosage: UNK
  6. ZYPREXA [Concomitant]
     Active Substance: OLANZAPINE
     Indication: Anger
     Dosage: UNK

REACTIONS (4)
  - Seizure [Recovering/Resolving]
  - Head injury [Unknown]
  - Fall [Unknown]
  - Anger [Unknown]
